FAERS Safety Report 24100504 (Version 1)
Quarter: 2024Q3

REPORT INFORMATION
  Report Type: Report from Study
  Country: GB (occurrence: GB)
  Receive Date: 20240717
  Receipt Date: 20240717
  Transmission Date: 20241017
  Serious: Yes (Hospitalization, Other)
  Sender: SANDOZ
  Company Number: GB-002147023-NVSC2020GB082027

PATIENT
  Age: 49 Year
  Sex: Female

DRUGS (1)
  1. HYRIMOZ [Suspect]
     Active Substance: ADALIMUMAB-ADAZ
     Indication: Colitis ulcerative
     Dosage: 40 MG, Q2W
     Route: 058

REACTIONS (5)
  - Surgery [Unknown]
  - Lower respiratory tract infection [Recovered/Resolved]
  - Pyrexia [Recovered/Resolved]
  - Infection [Unknown]
  - Illness [Recovered/Resolved]

NARRATIVE: CASE EVENT DATE: 20240601
